FAERS Safety Report 4625774-6 (Version None)
Quarter: 2005Q1

REPORT INFORMATION
  Report Type: 
  Country: None (occurrence: None)
  Receive Date: 20050330
  Receipt Date: 20050310
  Transmission Date: 20050727
  Serious: No
  Sender: FDA-Public Use
  Company Number: JP_050306105

PATIENT
  Age: 62 Year
  Sex: Female

DRUGS (3)
  1. EVISTA [Suspect]
     Indication: OSTEOPOROSIS POSTMENOPAUSAL
     Dosage: 60 MG/1 DAY
     Dates: start: 20040701, end: 20040101
  2. VALSARTAN [Concomitant]
  3. BAYMYCARD (NISOLDIPINE) [Concomitant]

REACTIONS (3)
  - EYE PAIN [None]
  - HYPERAEMIA [None]
  - RETINAL VEIN THROMBOSIS [None]
